FAERS Safety Report 6951298-7 (Version None)
Quarter: 2010Q3

REPORT INFORMATION
  Report Type: 
  Country: None (occurrence: None)
  Receive Date: 20100828
  Receipt Date: 20100316
  Transmission Date: 20110219
  Serious: No
  Sender: FDA-Public Use
  Company Number: US-ABBOTT-10P-163-0633954-00

PATIENT
  Sex: Male
  Weight: 77.18 kg

DRUGS (5)
  1. NIASPAN [Suspect]
     Indication: BLOOD CHOLESTEROL INCREASED
     Dates: start: 20100226
  2. NIASPAN [Suspect]
     Dates: start: 20100101, end: 20100226
  3. ASPIRIN [Concomitant]
     Indication: PROPHYLAXIS
  4. TOPROL-XL [Concomitant]
     Indication: MYOCARDIAL INFARCTION
     Dosage: DAILY
  5. PLAVIX [Concomitant]
     Indication: STENT PLACEMENT
     Dosage: DAILY

REACTIONS (2)
  - MYALGIA [None]
  - NAUSEA [None]
